FAERS Safety Report 19437840 (Version 1)
Quarter: 2021Q2

REPORT INFORMATION
  Report Type: Spontaneous
  Country: DE (occurrence: DE)
  Receive Date: 20210619
  Receipt Date: 20210619
  Transmission Date: 20210717
  Serious: Yes (Other)
  Sender: FDA-Public Use
  Company Number: DE-ABBVIE-21K-062-3957393-00

PATIENT
  Sex: Female

DRUGS (1)
  1. RINVOQ [Suspect]
     Active Substance: UPADACITINIB
     Indication: RHEUMATOID ARTHRITIS
     Route: 048
     Dates: start: 20210320

REACTIONS (4)
  - Cardiac failure [Unknown]
  - Ophthalmic herpes zoster [Unknown]
  - Oedema peripheral [Unknown]
  - Appendicitis [Unknown]

NARRATIVE: CASE EVENT DATE: 2021
